FAERS Safety Report 5486265-6 (Version None)
Quarter: 2007Q3

REPORT INFORMATION
  Report Type: 
  Country: None (occurrence: None)
  Receive Date: 20070917
  Receipt Date: 20060823
  Transmission Date: 20080115
  Serious: Yes (Hospitalization)
  Sender: FDA-Public Use
  Company Number: S06-USA-02699-01

PATIENT
  Age: 22 Year
  Sex: Female

DRUGS (1)
  1. CELEXA [Suspect]
     Dosage: 720 MG ONCE PO
     Route: 048
     Dates: start: 20060523, end: 20060523

REACTIONS (4)
  - DRUG EXPOSURE DURING PREGNANCY [None]
  - INTENTIONAL OVERDOSE [None]
  - NAUSEA [None]
  - VOMITING [None]
